FAERS Safety Report 8367613-6 (Version None)
Quarter: 2012Q1

REPORT INFORMATION
  Report Type: 
  Country: None (occurrence: None)
  Receive Date: 20120323
  Receipt Date: 20110802
  Transmission Date: 20120608
  Serious: Yes (Hospitalization)
  Sender: FDA-Public Use
  Company Number: 163-21880-11080427

PATIENT
  Age: 63 Year
  Sex: Male

DRUGS (3)
  1. REVLIMID [Suspect]
     Indication: MULTIPLE MYELOMA
     Dosage: 15 MG, QD, PO ;  5 MG, QD, PO
     Route: 048
     Dates: start: 20100301, end: 20110601
  2. REVLIMID [Suspect]
     Indication: PRODUCT USED FOR UNKNOWN INDICATION
     Dosage: 15 MG, QD, PO ;  5 MG, QD, PO
     Route: 048
     Dates: start: 20100301, end: 20110601
  3. COUMADIN [Concomitant]

REACTIONS (1)
  - PNEUMONIA [None]
